FAERS Safety Report 24948383 (Version 1)
Quarter: 2025Q1

REPORT INFORMATION
  Report Type: Spontaneous
  Country: US (occurrence: US)
  Receive Date: 20250210
  Receipt Date: 20250210
  Transmission Date: 20250409
  Serious: Yes (Hospitalization, Other)
  Sender: HIKMA
  Company Number: US-HIKMA PHARMACEUTICALS-US-H14001-25-00982

PATIENT
  Age: 70 Year
  Sex: Male

DRUGS (4)
  1. FLUOROURACIL [Suspect]
     Active Substance: FLUOROURACIL
     Indication: Adenocarcinoma gastric
     Dosage: 1200 MILLIGRAM/SQ. METER, QOW
     Route: 042
     Dates: start: 20230620
  2. LEUCOVORIN CALCIUM [Suspect]
     Active Substance: LEUCOVORIN CALCIUM
     Indication: Adenocarcinoma gastric
     Dosage: 400 MILLIGRAM/SQ. METER, QOW
     Route: 042
     Dates: start: 20230620
  3. OXALIPLATIN [Suspect]
     Active Substance: OXALIPLATIN
     Indication: Adenocarcinoma gastric
     Route: 042
     Dates: start: 20230620
  4. TISLELIZUMAB [Suspect]
     Active Substance: TISLELIZUMAB
     Indication: Product used for unknown indication
     Route: 065

REACTIONS (1)
  - Febrile neutropenia [Recovered/Resolved]

NARRATIVE: CASE EVENT DATE: 20230703
